FAERS Safety Report 9264468 (Version 1)
Quarter: 2013Q2

REPORT INFORMATION
  Report Type: Report from Study
  Country: JP (occurrence: JP)
  Receive Date: 20130501
  Receipt Date: 20130501
  Transmission Date: 20140414
  Serious: Yes (Other)
  Sender: FDA-Public Use
  Company Number: JP-ROCHE-1219580

PATIENT
  Sex: 0

DRUGS (2)
  1. RITUXIMAB [Suspect]
     Indication: B-CELL LYMPHOMA
     Route: 065
  2. BENDAMUSTINE [Suspect]
     Indication: B-CELL LYMPHOMA
     Route: 065

REACTIONS (7)
  - Neutropenia [Unknown]
  - Anaemia [Unknown]
  - Thrombocytopenia [Unknown]
  - Pneumonia [Unknown]
  - Empyema [Unknown]
  - Hiccups [Unknown]
  - Vasculitis [Unknown]
